FAERS Safety Report 20108307 (Version 1)
Quarter: 2021Q4

REPORT INFORMATION
  Report Type: Spontaneous
  Country: CA (occurrence: CA)
  Receive Date: 20211124
  Receipt Date: 20211124
  Transmission Date: 20220304
  Serious: Yes (Life-Threatening, Hospitalization, Other)
  Sender: FDA-Public Use
  Company Number: CA-SA-SAC20211123000678

PATIENT
  Age: 69 Year
  Sex: Male

DRUGS (11)
  1. LEFLUNOMIDE [Suspect]
     Active Substance: LEFLUNOMIDE
     Indication: Rheumatoid arthritis
     Dosage: 20 MG
  2. BISOPROLOL [Concomitant]
     Active Substance: BISOPROLOL
     Indication: Rheumatoid arthritis
     Dosage: 10 MG, QD (1 EVERY 1 DAYS)
  3. DILTIAZEM [Concomitant]
     Active Substance: DILTIAZEM
     Indication: Rheumatoid arthritis
     Dosage: 360 MG, QD (1 EVERY 1 DAYS)
  4. FLUOXETINE [Concomitant]
     Active Substance: FLUOXETINE HYDROCHLORIDE
     Indication: Rheumatoid arthritis
     Dosage: 40 MG, QD (1 EVERY 1 DAYS)
  5. HUMIRA [Concomitant]
     Active Substance: ADALIMUMAB
     Indication: Rheumatoid arthritis
     Dosage: UNK
  6. HYDRALAZINE [Concomitant]
     Active Substance: HYDRALAZINE HYDROCHLORIDE
     Indication: Rheumatoid arthritis
     Dosage: 3 DF, QD (3 EVERY 1 DAYS)
  7. OMEPRAZOLE [Concomitant]
     Active Substance: OMEPRAZOLE
     Indication: Rheumatoid arthritis
     Dosage: 40 MG, QD
  8. ONDANSETRON [Concomitant]
     Active Substance: ONDANSETRON
     Indication: Rheumatoid arthritis
  9. SUCRALFATE [Concomitant]
     Active Substance: SUCRALFATE
     Indication: Rheumatoid arthritis
     Dosage: 4 DF, QD (4 EVERY 1 DAYS)
  10. TRAZODONE [Concomitant]
     Active Substance: TRAZODONE HYDROCHLORIDE
     Indication: Rheumatoid arthritis
     Dosage: 150 MG, QD (1 EVERY 1 DAYS)
  11. WELLBUTRIN [Concomitant]
     Active Substance: BUPROPION HYDROCHLORIDE
     Indication: Rheumatoid arthritis
     Dosage: 300 MG, QD (1 EVERY 1 DAYS)

REACTIONS (1)
  - Agranulocytosis [Unknown]
